FAERS Safety Report 16089457 (Version 1)
Quarter: 2019Q1

REPORT INFORMATION
  Report Type: Spontaneous
  Country: DK (occurrence: DK)
  Receive Date: 20190319
  Receipt Date: 20190319
  Transmission Date: 20190418
  Serious: Yes (Hospitalization)
  Sender: FDA-Public Use
  Company Number: DK-ELI_LILLY_AND_COMPANY-DK201903004245

PATIENT
  Age: 35 Year
  Sex: Female

DRUGS (2)
  1. STRATTERA [Suspect]
     Active Substance: ATOMOXETINE HYDROCHLORIDE
     Indication: ATTENTION DEFICIT/HYPERACTIVITY DISORDER
     Dosage: UNK UNK, UNKNOWN
     Route: 048
     Dates: start: 20150811, end: 20150917
  2. VENLAFAXINE [Concomitant]
     Active Substance: VENLAFAXINE HYDROCHLORIDE
     Indication: DEPRESSION
     Dosage: STYRKE: 150 MG.
     Route: 048
     Dates: start: 20150619, end: 20180607

REACTIONS (12)
  - Anger [Unknown]
  - Aggression [Unknown]
  - Depressive symptom [Unknown]
  - Feeling of despair [Unknown]
  - Crying [Unknown]
  - Anxiety [Unknown]
  - Asthenia [Unknown]
  - Memory impairment [Unknown]
  - Restlessness [Unknown]
  - Panic attack [Unknown]
  - Stress [Unknown]
  - Fatigue [Unknown]

NARRATIVE: CASE EVENT DATE: 201508
